FAERS Safety Report 4709421-0 (Version None)
Quarter: 2005Q3

REPORT INFORMATION
  Report Type: 
  Country: None (occurrence: None)
  Receive Date: 20050705
  Receipt Date: 20050621
  Transmission Date: 20060218
  Serious: Yes (Other)
  Sender: FDA-Public Use
  Company Number: 215534

PATIENT
  Age: 39 Year
  Sex: Female

DRUGS (2)
  1. RAPTIVA [Suspect]
     Indication: PSORIASIS
     Dosage: 125 MG, 1/WEEK
  2. ANTIBIOTIC NOS [Concomitant]

REACTIONS (2)
  - GALLBLADDER DISORDER [None]
  - RASH [None]
